FAERS Safety Report 25414217 (Version 1)
Quarter: 2025Q2

REPORT INFORMATION
  Report Type: Spontaneous
  Country: DE (occurrence: DE)
  Receive Date: 20250609
  Receipt Date: 20250609
  Transmission Date: 20250717
  Serious: Yes (Other)
  Sender: PFIZER
  Company Number: DE-AMK-288086

PATIENT
  Age: 10 Year
  Sex: Female
  Weight: 44.9 kg

DRUGS (1)
  1. LINEZOLID [Suspect]
     Active Substance: LINEZOLID
     Dosage: 1 DF, 3X/DAY (EVERY 8 HOURS 400-400-400)
     Route: 042
     Dates: start: 20250509, end: 20250514

REACTIONS (1)
  - Vancomycin infusion reaction [Recovered/Resolved]

NARRATIVE: CASE EVENT DATE: 20250514
